FAERS Safety Report 16899865 (Version 1)
Quarter: 2019Q4

REPORT INFORMATION
  Report Type: Spontaneous
  Country: US (occurrence: US)
  Receive Date: 20190815
  Receipt Date: 20190815
  Transmission Date: 20200122
  Serious: Yes (Hospitalization)
  Sender: FDA-Public Use
  Company Number: None

PATIENT
  Sex: Female

DRUGS (13)
  1. FUROSEMIDE. [Concomitant]
     Active Substance: FUROSEMIDE
  2. LETARIS [Concomitant]
     Active Substance: AMBRISENTAN
  3. TIZANIDINE. [Concomitant]
     Active Substance: TIZANIDINE
  4. ESBRIET [Suspect]
     Active Substance: PIRFENIDONE
     Indication: IDIOPATHIC PULMONARY FIBROSIS
     Route: 048
     Dates: start: 20180112
  5. CEPHALEXIN. [Concomitant]
     Active Substance: CEPHALEXIN
  6. ESCITALOPRAM [Concomitant]
     Active Substance: ESCITALOPRAM OXALATE
  7. MIDODRINE [Concomitant]
     Active Substance: MIDODRINE
  8. SILDENAFIL. [Concomitant]
     Active Substance: SILDENAFIL
  9. METOPROL SUC [Concomitant]
  10. PANTOPRAZOLE [Concomitant]
     Active Substance: PANTOPRAZOLE
  11. LORAZEPAM. [Concomitant]
     Active Substance: LORAZEPAM
  12. METHYLPRED [Concomitant]
     Active Substance: METHYLPREDNISOLONE
  13. LISINOPRIL. [Concomitant]
     Active Substance: LISINOPRIL

REACTIONS (2)
  - Fall [None]
  - Cervical vertebral fracture [None]
